FAERS Safety Report 7234717-0 (Version None)
Quarter: 2011Q1

REPORT INFORMATION
  Report Type: 
  Country: None (occurrence: None)
  Receive Date: 20110120
  Receipt Date: 20110112
  Transmission Date: 20110831
  Serious: No
  Sender: FDA-Public Use
  Company Number: US-BIOGENIDEC-2011BI001715

PATIENT
  Age: 28 Year
  Sex: Female

DRUGS (1)
  1. AVONEX [Suspect]
     Indication: MULTIPLE SCLEROSIS
     Route: 030
     Dates: start: 20101201

REACTIONS (6)
  - ARTHRALGIA [None]
  - PAIN IN EXTREMITY [None]
  - HYPERSOMNIA [None]
  - PYREXIA [None]
  - HEADACHE [None]
  - MUSCLE SPASMS [None]
